FAERS Safety Report 14187814 (Version 1)
Quarter: 2017Q4

REPORT INFORMATION
  Report Type: Spontaneous
  Country: US (occurrence: US)
  Receive Date: 20171114
  Receipt Date: 20171114
  Transmission Date: 20180321
  Serious: No
  Sender: FDA-Public Use
  Company Number: US-BAUSCH-BL-2017-026865

PATIENT
  Age: 48 Year
  Sex: Female
  Weight: 54.48 kg

DRUGS (2)
  1. RETIN-A MICRO [Suspect]
     Active Substance: TRETINOIN
     Dosage: AS NEEDED (NEW TUBE)
     Route: 061
     Dates: start: 20170825
  2. RETIN-A MICRO [Suspect]
     Active Substance: TRETINOIN
     Indication: ACNE
     Dosage: STARTED 7-8 YEARS AGO; AS NEEDED
     Route: 061
     Dates: end: 2017

REACTIONS (2)
  - Drug ineffective [Recovered/Resolved]
  - Prescription drug used without a prescription [Unknown]
